FAERS Safety Report 8426196-2 (Version None)
Quarter: 2012Q2

REPORT INFORMATION
  Report Type: 
  Country: None (occurrence: None)
  Receive Date: 20120611
  Receipt Date: 20110726
  Transmission Date: 20120825
  Serious: No
  Sender: FDA-Public Use
  Company Number: US-MYLANLABS-2011S1015519

PATIENT
  Age: 49 Year
  Sex: Male
  Weight: 72.58 kg

DRUGS (1)
  1. CYCLOBENZAPRINE HCL [Suspect]
     Indication: MUSCLE RELAXANT THERAPY
     Route: 048
     Dates: start: 20110701, end: 20110724

REACTIONS (4)
  - HEADACHE [None]
  - CARDIAC FLUTTER [None]
  - CONSTIPATION [None]
  - EJACULATION FAILURE [None]
